FAERS Safety Report 24205532 (Version 1)
Quarter: 2024Q3

REPORT INFORMATION
  Report Type: Spontaneous
  Country: CN (occurrence: CN)
  Receive Date: 20240813
  Receipt Date: 20240813
  Transmission Date: 20241017
  Serious: Yes (Other)
  Sender: BAYER
  Company Number: CN-BAYER-2024A116276

PATIENT
  Age: 51 Year
  Sex: Male
  Weight: 76 kg

DRUGS (1)
  1. ULTRAVIST [Suspect]
     Active Substance: IOPROMIDE
     Indication: Computerised tomogram heart
     Dosage: 50 ML, ONCE
     Route: 042
     Dates: start: 20240801, end: 20240801

REACTIONS (5)
  - Contrast media allergy [Recovering/Resolving]
  - Oropharyngeal discomfort [Recovering/Resolving]
  - Urticaria [Recovering/Resolving]
  - Respiratory rate increased [None]
  - Blood pressure systolic increased [None]

NARRATIVE: CASE EVENT DATE: 20240801
